FAERS Safety Report 5400474-3 (Version None)
Quarter: 2007Q3

REPORT INFORMATION
  Report Type: 
  Country: None (occurrence: None)
  Receive Date: 20070730
  Receipt Date: 20070716
  Transmission Date: 20080115
  Serious: Yes (Other)
  Sender: FDA-Public Use
  Company Number: US-MERCK-0707USA02582

PATIENT
  Age: 84 Year
  Sex: Female

DRUGS (1)
  1. ZOLINZA [Suspect]
     Indication: MYCOSIS FUNGOIDES
     Route: 048

REACTIONS (4)
  - DIARRHOEA [None]
  - FATIGUE [None]
  - MYCOSIS FUNGOIDES [None]
  - PLATELET COUNT DECREASED [None]
